FAERS Safety Report 19716735 (Version 1)
Quarter: 2021Q3

REPORT INFORMATION
  Report Type: Spontaneous
  Country: US (occurrence: US)
  Receive Date: 20210819
  Receipt Date: 20210819
  Transmission Date: 20211014
  Serious: No
  Sender: FDA-Public Use
  Company Number: US-SA-2021SA272285

PATIENT
  Sex: Male

DRUGS (12)
  1. KEVZARA [Suspect]
     Active Substance: SARILUMAB
     Indication: RHEUMATOID ARTHRITIS
     Dosage: 200 MG, QOW
     Route: 058
  2. PREDNISONE. [Concomitant]
     Active Substance: PREDNISONE
  3. CYCLOBENZAPRIN [Concomitant]
     Active Substance: CYCLOBENZAPRINE
  4. KEVZARA [Suspect]
     Active Substance: SARILUMAB
     Dosage: 200 MG, QOW
     Route: 058
  5. PROMETHAZINE HCL [Concomitant]
     Active Substance: PROMETHAZINE HYDROCHLORIDE
  6. COLCRYS [Concomitant]
     Active Substance: COLCHICINE
     Dosage: 06MG
  7. LISINOPRIL. [Concomitant]
     Active Substance: LISINOPRIL
  8. NAPROXEN. [Concomitant]
     Active Substance: NAPROXEN
  9. TRAMADOL HCL [Concomitant]
     Active Substance: TRAMADOL HYDROCHLORIDE
  10. ALLOPURINOL. [Concomitant]
     Active Substance: ALLOPURINOL
  11. LEVOTHYROXIN [Concomitant]
     Active Substance: LEVOTHYROXINE
  12. AMLODIPINE BESYLATE. [Concomitant]
     Active Substance: AMLODIPINE BESYLATE

REACTIONS (1)
  - Product dose omission issue [Unknown]
